FAERS Safety Report 7765983-0 (Version None)
Quarter: 2011Q3

REPORT INFORMATION
  Report Type: 
  Country: None (occurrence: None)
  Receive Date: 20110921
  Receipt Date: 20110907
  Transmission Date: 20111222
  Serious: Yes (Other)
  Sender: FDA-Public Use
  Company Number: UA-ELI_LILLY_AND_COMPANY-UA201109002851

PATIENT
  Age: 77 Year
  Sex: Male

DRUGS (3)
  1. INSULIN HUMAN [Concomitant]
     Indication: BLOOD GLUCOSE INCREASED
     Dosage: UNK
  2. HUMULIN N [Suspect]
     Dosage: 6 IU, EACH EVENING
     Route: 058
     Dates: start: 20110905, end: 20110907
  3. HUMULIN N [Suspect]
     Dosage: 19 IU, EACH MORNING
     Route: 058
     Dates: start: 20110905, end: 20110906

REACTIONS (4)
  - DRUG INEFFECTIVE [None]
  - DIZZINESS [None]
  - HYPOGLYCAEMIC COMA [None]
  - BLOOD GLUCOSE INCREASED [None]
